FAERS Safety Report 7413772-9 (Version None)
Quarter: 2011Q2

REPORT INFORMATION
  Report Type: 
  Country: None (occurrence: None)
  Receive Date: 20110413
  Receipt Date: 20110405
  Transmission Date: 20111010
  Serious: Yes (Other)
  Sender: FDA-Public Use
  Company Number: US-SANOFI-AVENTIS-2011SA021841

PATIENT
  Age: 73 Year
  Sex: Male
  Weight: 72.6 kg

DRUGS (10)
  1. FLOMAX [Concomitant]
  2. GLIMEPIRIDE [Concomitant]
  3. METOPROLOL TARTRATE [Concomitant]
  4. PLAVIX [Suspect]
     Route: 048
     Dates: start: 20090101, end: 20110101
  5. ASPIRIN [Concomitant]
  6. METFORMIN [Concomitant]
  7. PLAVIX [Suspect]
     Indication: STENT PLACEMENT
     Route: 048
     Dates: start: 20090101, end: 20110101
  8. PRAVASTATIN [Suspect]
     Route: 065
     Dates: start: 20110125
  9. LIPITOR [Suspect]
     Dates: start: 20090101, end: 20110101
  10. LISINOPRIL AND HYDROCHLOROTHIAZIDE [Concomitant]

REACTIONS (3)
  - MUSCLE DISORDER [None]
  - PAIN IN EXTREMITY [None]
  - FATIGUE [None]
